FAERS Safety Report 5606323-2 (Version None)
Quarter: 2008Q1

REPORT INFORMATION
  Report Type: 
  Country: None (occurrence: None)
  Receive Date: 20080129
  Receipt Date: 20070613
  Transmission Date: 20080703
  Serious: No
  Sender: FDA-Public Use
  Company Number: A0655893A

PATIENT
  Age: 28 Year
  Sex: Female

DRUGS (2)
  1. WELLBUTRIN [Suspect]
     Route: 048
     Dates: start: 20070608
  2. UNKNOWN MEDICATION [Concomitant]

REACTIONS (3)
  - HUNGER [None]
  - PANIC REACTION [None]
  - WEIGHT INCREASED [None]
